FAERS Safety Report 13783167 (Version 1)
Quarter: 2017Q3

REPORT INFORMATION
  Report Type: Spontaneous
  Country: HU (occurrence: HU)
  Receive Date: 20170724
  Receipt Date: 20170724
  Transmission Date: 20171127
  Serious: Yes (Death, Hospitalization, Other)
  Sender: FDA-Public Use
  Company Number: HU-SEATTLE GENETICS-2017SGN01804

PATIENT
  Sex: Female
  Weight: 48 kg

DRUGS (3)
  1. BRENTUXIMAB VEDOTIN [Suspect]
     Active Substance: BRENTUXIMAB VEDOTIN
     Indication: HODGKIN^S DISEASE
     Dosage: UNK
     Route: 042
     Dates: start: 20170123, end: 20170622
  2. BENDAMUSTINE HYDROCHLORIDE. [Suspect]
     Active Substance: BENDAMUSTINE HYDROCHLORIDE
     Indication: HODGKIN^S DISEASE
     Dosage: UNK
     Route: 042
     Dates: start: 20170123, end: 20170622
  3. GANCICLOVIR. [Concomitant]
     Active Substance: GANCICLOVIR
     Indication: VIRAL INFECTION
     Dosage: UNK
     Route: 065
     Dates: start: 20170123

REACTIONS (4)
  - Respiratory distress [Fatal]
  - Pneumonia [Fatal]
  - Off label use [Unknown]
  - Sepsis [Fatal]

NARRATIVE: CASE EVENT DATE: 20170123
